FAERS Safety Report 11238395 (Version 2)
Quarter: 2016Q4

REPORT INFORMATION
  Report Type: Report from Study
  Country: US (occurrence: US)
  Receive Date: 20150704
  Receipt Date: 20161230
  Transmission Date: 20170206
  Serious: No
  Sender: FDA-Public Use
  Company Number: PHEH2015US011026

PATIENT
  Age: 38 Year
  Sex: Female

DRUGS (1)
  1. COSENTYX [Suspect]
     Active Substance: SECUKINUMAB
     Indication: PSORIASIS
     Dosage: 300 MG, QMO
     Route: 058
     Dates: start: 20150522

REACTIONS (10)
  - Nausea [Unknown]
  - Arthralgia [Unknown]
  - Nasal congestion [Unknown]
  - Hypoaesthesia [Recovering/Resolving]
  - Headache [Unknown]
  - Drug ineffective [Not Recovered/Not Resolved]
  - Vomiting [Unknown]
  - Oropharyngeal pain [Unknown]
  - Fatigue [Not Recovered/Not Resolved]
  - Decreased appetite [Unknown]

NARRATIVE: CASE EVENT DATE: 20161223
